FAERS Safety Report 7491018-3 (Version None)
Quarter: 2011Q2

REPORT INFORMATION
  Report Type: 
  Country: None (occurrence: None)
  Receive Date: 20110519
  Receipt Date: 20110516
  Transmission Date: 20111010
  Serious: Yes (Other)
  Sender: FDA-Public Use
  Company Number: US-PFIZER INC-2011023132

PATIENT
  Sex: Female

DRUGS (2)
  1. CHANTIX [Suspect]
     Indication: SMOKING CESSATION THERAPY
     Dosage: UNK
     Dates: start: 20090401
  2. CHANTIX [Suspect]
     Dosage: 0.5MG AND 1MG
     Route: 048
     Dates: start: 20080601, end: 20090401

REACTIONS (5)
  - LOSS OF CONSCIOUSNESS [None]
  - AGGRESSION [None]
  - SUICIDAL IDEATION [None]
  - ANXIETY [None]
  - DEPRESSION [None]
